FAERS Safety Report 5904850-1 (Version None)
Quarter: 2008Q4

REPORT INFORMATION
  Report Type: 
  Country: None (occurrence: None)
  Receive Date: 20081001
  Receipt Date: 20080926
  Transmission Date: 20090506
  Serious: Yes (Other)
  Sender: FDA-Public Use
  Company Number: A0732010A

PATIENT
  Sex: Male
  Weight: 109.1 kg

DRUGS (9)
  1. AVANDIA [Suspect]
     Indication: DIABETES MELLITUS
     Dosage: 4MG TWICE PER DAY
     Route: 048
     Dates: start: 20060222, end: 20070601
  2. METFORMIN HCL [Concomitant]
  3. METOPROLOL TARTRATE [Concomitant]
  4. SIMVASTATIN [Concomitant]
  5. FUROSEMIDE [Concomitant]
     Dates: start: 20060201
  6. INSULIN [Concomitant]
     Dates: start: 20060201
  7. NYSTATIN [Concomitant]
     Dates: start: 20060201
  8. VALSARTAN [Concomitant]
     Dates: start: 20060201
  9. FELODIPINE [Concomitant]
     Dates: start: 20060201

REACTIONS (7)
  - ANXIETY [None]
  - CARDIAC FAILURE CONGESTIVE [None]
  - OEDEMA PERIPHERAL [None]
  - PAIN [None]
  - PANIC ATTACK [None]
  - VISION BLURRED [None]
  - WEIGHT INCREASED [None]
